FAERS Safety Report 8079299-9 (Version None)
Quarter: 2012Q1

REPORT INFORMATION
  Report Type: 
  Country: None (occurrence: None)
  Receive Date: 20120128
  Receipt Date: 20110820
  Transmission Date: 20120608
  Serious: No
  Sender: FDA-Public Use
  Company Number: US-ABBOTT-11P-163-0848342-00

PATIENT
  Age: 42 Year
  Sex: Female

DRUGS (3)
  1. HUMIRA [Suspect]
     Dates: start: 20110806
  2. HUMIRA [Suspect]
     Indication: ANKYLOSING SPONDYLITIS
     Dates: start: 20091101, end: 20091201
  3. IBUPROFEN [Concomitant]
     Indication: PAIN

REACTIONS (3)
  - MENORRHAGIA [None]
  - ANKYLOSING SPONDYLITIS [None]
  - DYSMENORRHOEA [None]
